FAERS Safety Report 5534065-0 (Version None)
Quarter: 2007Q4

REPORT INFORMATION
  Report Type: 
  Country: None (occurrence: None)
  Receive Date: 20071129
  Receipt Date: 20071129
  Transmission Date: 20080405
  Serious: Yes (Hospitalization)
  Sender: FDA-Public Use
  Company Number: None

PATIENT
  Sex: Male
  Weight: 86.3 kg

DRUGS (5)
  1. CISPLATIN [Suspect]
     Dosage: 186 MG
     Dates: end: 20071113
  2. COMPAZINE [Concomitant]
  3. DEXAMETHASONE TAB [Concomitant]
  4. HALDOL ELIXIR [Concomitant]
  5. OXYCODONE ELIXIR [Concomitant]

REACTIONS (5)
  - ABNORMAL BEHAVIOUR [None]
  - AGITATION [None]
  - ATAXIA [None]
  - CONFUSIONAL STATE [None]
  - DISORIENTATION [None]
